FAERS Safety Report 5844585-7 (Version None)
Quarter: 2008Q3

REPORT INFORMATION
  Report Type: 
  Country: None (occurrence: None)
  Receive Date: 20080813
  Receipt Date: 20080813
  Transmission Date: 20090109
  Serious: Yes (Other)
  Sender: FDA-Public Use
  Company Number: None

PATIENT
  Age: 22 Year
  Sex: Female
  Weight: 61.2356 kg

DRUGS (1)
  1. DOXYCYLINE  100 MG  WATSON [Suspect]
     Indication: ACNE
     Dosage: 1 DAILY PO
     Route: 048
     Dates: start: 20080619, end: 20080703

REACTIONS (5)
  - HYPOPHAGIA [None]
  - NAUSEA [None]
  - OESOPHAGEAL RUPTURE [None]
  - OESOPHAGEAL ULCER [None]
  - OESOPHAGITIS [None]
